FAERS Safety Report 6213817-8 (Version None)
Quarter: 2009Q2

REPORT INFORMATION
  Report Type: 
  Country: None (occurrence: None)
  Receive Date: 20090602
  Receipt Date: 20090527
  Transmission Date: 20091009
  Serious: Yes (Death, Other)
  Sender: FDA-Public Use
  Company Number: 2009US001948

PATIENT
  Age: 61 Year
  Sex: Male

DRUGS (4)
  1. PROGRAF [Suspect]
     Indication: LUNG TRANSPLANT
  2. MYCOPHENOLATE MOFETIL [Suspect]
     Indication: LUNG TRANSPLANT
  3. DACLIZUMAB(DACLIZUMAB) [Suspect]
     Indication: LUNG TRANSPLANT
  4. CORTICOSTEROID NOS(CORTICOSTEROID NOS) [Suspect]
     Indication: LUNG TRANSPLANT

REACTIONS (5)
  - MULTIPLE-DRUG RESISTANCE [None]
  - MYCOBACTERIUM KANSASII INFECTION [None]
  - PSEUDOMONAS INFECTION [None]
  - SEPSIS [None]
  - STRONGYLOIDIASIS [None]
